FAERS Safety Report 8498717-5 (Version None)
Quarter: 2012Q3

REPORT INFORMATION
  Report Type: 
  Country: None (occurrence: None)
  Receive Date: 20120709
  Receipt Date: 20120628
  Transmission Date: 20120928
  Serious: Yes (Other)
  Sender: FDA-Public Use
  Company Number: US-AMGEN-USASP2012040179

PATIENT
  Age: 51 Year
  Sex: Male

DRUGS (1)
  1. ENBREL [Suspect]
     Indication: RHEUMATOID ARTHRITIS
     Dosage: 50 MG, QWK
     Dates: start: 20080226, end: 20120401

REACTIONS (7)
  - INCISION SITE INFECTION [None]
  - RHEUMATOID ARTHRITIS [None]
  - OSTEOMYELITIS [None]
  - INCISION SITE COMPLICATION [None]
  - IMPAIRED HEALING [None]
  - GAIT DISTURBANCE [None]
  - FOOT DEFORMITY [None]
